FAERS Safety Report 25901076 (Version 1)
Quarter: 2025Q4

REPORT INFORMATION
  Report Type: Spontaneous
  Country: EU (occurrence: EU)
  Receive Date: 20251009
  Receipt Date: 20251009
  Transmission Date: 20260117
  Serious: Yes (Other)
  Sender: RANBAXY
  Company Number: EU-SUN PHARMACEUTICAL INDUSTRIES LTD-2025R1-530377

PATIENT
  Sex: Female
  Weight: 1.34 kg

DRUGS (5)
  1. ATOSIBAN [Suspect]
     Active Substance: ATOSIBAN
     Indication: Tocolysis
     Dosage: 6,75 MG BOLUS, 75 MILLIGRAMS
     Route: 042
  2. AZITHROMYCIN [Suspect]
     Active Substance: AZITHROMYCIN
     Indication: Antibiotic prophylaxis
     Dosage: 1 GRAM
     Route: 065
  3. AMPICILLIN [Suspect]
     Active Substance: AMPICILLIN
     Indication: Antibiotic prophylaxis
     Dosage: 2 GRAM, EVERY 8 HOURS
     Route: 065
  4. MAGNESIUM [Suspect]
     Active Substance: MAGNESIUM
     Indication: Nervous system disorder prophylaxis
     Dosage: 400 MILLIGRAM
  5. BETAMETHASONE [Suspect]
     Active Substance: BETAMETHASONE
     Indication: Maternal therapy to enhance foetal lung maturity
     Dosage: 12 MILLIGRAM
     Route: 030

REACTIONS (7)
  - Foetal exposure during pregnancy [Unknown]
  - Low birth weight baby [Unknown]
  - Meconium aspiration syndrome [Recovered/Resolved]
  - Mycoplasma infection [Recovered/Resolved]
  - Neonatal respiratory distress syndrome [Recovered/Resolved]
  - Premature baby [Unknown]
  - Pulmonary hypertension [Recovered/Resolved]
